FAERS Safety Report 23331377 (Version 1)
Quarter: 2023Q4

REPORT INFORMATION
  Report Type: Spontaneous
  Country: CZ (occurrence: CZ)
  Receive Date: 20231222
  Receipt Date: 20231222
  Transmission Date: 20240110
  Serious: Yes (Other)
  Sender: FDA-Public Use
  Company Number: CZ-Korea IPSEN-2023-28099

PATIENT
  Sex: Male

DRUGS (3)
  1. DYSPORT [Suspect]
     Active Substance: ABOBOTULINUMTOXINA
     Indication: Product used for unknown indication
     Dosage: TOTAL 800U TO RIGHT LOWER EXTREMITY
     Route: 065
  2. DYSPORT [Suspect]
     Active Substance: ABOBOTULINUMTOXINA
     Dosage: TOTAL 900U TO RIGHT LOWER EXTREMITY
     Route: 065
  3. KEPPRA [Concomitant]
     Active Substance: LEVETIRACETAM

REACTIONS (4)
  - Epilepsy [Unknown]
  - Muscle spasms [Unknown]
  - Injection site pain [Unknown]
  - Injection site injury [Unknown]
